FAERS Safety Report 4336896-1 (Version None)
Quarter: 2004Q2

REPORT INFORMATION
  Report Type: 
  Country: None (occurrence: None)
  Receive Date: 20040407
  Receipt Date: 20040324
  Transmission Date: 20050107
  Serious: Yes (Hospitalization, Other)
  Sender: FDA-Public Use
  Company Number: USA040362960

PATIENT
  Age: 34 Year
  Sex: Male
  Weight: 100 kg

DRUGS (5)
  1. ILETIN [Suspect]
     Dates: end: 19990101
  2. HUMALOG [Suspect]
     Dates: start: 19970101, end: 19970101
  3. NPH ILETIN I (BEEF-PORK) [Suspect]
     Dates: end: 19990101
  4. REGULAR INSULIN [Suspect]
     Dates: start: 19990101
  5. NPH ILETIN II (PORK) [Suspect]
     Dosage: 37 U DAY
     Dates: start: 19990101

REACTIONS (8)
  - ACCIDENT AT WORK [None]
  - DRUG INEFFECTIVE [None]
  - LEG AMPUTATION [None]
  - LIMB INJURY [None]
  - LOCALISED INFECTION [None]
  - STAPHYLOCOCCAL INFECTION [None]
  - SURGERY [None]
  - TOE AMPUTATION [None]
